FAERS Safety Report 7118850-X (Version None)
Quarter: 2010Q4

REPORT INFORMATION
  Report Type: 
  Country: None (occurrence: None)
  Receive Date: 20101123
  Receipt Date: 20100924
  Transmission Date: 20110411
  Serious: No
  Sender: FDA-Public Use
  Company Number: US-KINGPHARMUSA00001-K201001206

PATIENT
  Age: 66 Year
  Sex: Female
  Weight: 57.596 kg

DRUGS (2)
  1. FLECTOR [Suspect]
     Indication: BACK PAIN
     Dosage: 1 PATCH, TWICE
     Route: 061
     Dates: start: 20100909
  2. PREMARIN [Concomitant]
     Dosage: ^LOW DOSE^

REACTIONS (2)
  - CARDIAC DISCOMFORT [None]
  - FEELING ABNORMAL [None]
